FAERS Safety Report 17263781 (Version 5)
Quarter: 2020Q1

REPORT INFORMATION
  Report Type: Spontaneous
  Country: US (occurrence: US)
  Receive Date: 20200113
  Receipt Date: 20200310
  Transmission Date: 20200409
  Serious: Yes (Other)
  Sender: FDA-Public Use
  Company Number: US-DSJP-DSU-2020-100402

PATIENT

DRUGS (1)
  1. TURALIO [Suspect]
     Active Substance: PEXIDARTINIB HYDROCHLORIDE
     Indication: SYNOVITIS
     Dosage: 400 MG, BID
     Route: 048
     Dates: start: 20191228

REACTIONS (12)
  - Diarrhoea [Recovered/Resolved]
  - Body temperature increased [Unknown]
  - Malaise [Recovering/Resolving]
  - Bedridden [Unknown]
  - Lagophthalmos [Not Recovered/Not Resolved]
  - Headache [Not Recovered/Not Resolved]
  - Nausea [Not Recovered/Not Resolved]
  - Adrenal insufficiency [Unknown]
  - Hypothyroidism [Unknown]
  - Pain [Unknown]
  - Hypopituitarism [Unknown]
  - Electrolyte imbalance [Unknown]

NARRATIVE: CASE EVENT DATE: 20200103
